FAERS Safety Report 6930231-8 (Version None)
Quarter: 2010Q3

REPORT INFORMATION
  Report Type: 
  Country: None (occurrence: None)
  Receive Date: 20100817
  Receipt Date: 20100817
  Transmission Date: 20110219
  Serious: Yes (Hospitalization)
  Sender: FDA-Public Use
  Company Number: None

PATIENT
  Sex: Female
  Weight: 56.6996 kg

DRUGS (1)
  1. LEXAPRO [Suspect]
     Indication: DEPRESSION
     Dosage: 10 MG TABLET 1 PILL @ NIGHT
     Dates: start: 20030101, end: 20090101

REACTIONS (2)
  - HYPOAESTHESIA [None]
  - PAIN IN JAW [None]
